FAERS Safety Report 9241926 (Version 1)
Quarter: 2013Q2

REPORT INFORMATION
  Report Type: Spontaneous
  Country: CA (occurrence: CA)
  Receive Date: 20130419
  Receipt Date: 20130419
  Transmission Date: 20140414
  Serious: Yes (Disabling)
  Sender: FDA-Public Use
  Company Number: CA-NOVOPROD-375217

PATIENT
  Age: 73 Year
  Sex: Female
  Weight: 58.06 kg

DRUGS (9)
  1. VAGIFEM? 10 [Suspect]
     Indication: PRODUCT USED FOR UNKNOWN INDICATION
     Dosage: UNK
     Route: 067
  2. ACCURETIC [Concomitant]
  3. ELAVIL                             /00002202/ [Concomitant]
  4. ASA [Concomitant]
  5. VENLAFAXINE [Concomitant]
  6. OMEPRAZOLE [Concomitant]
  7. PMS CITALOPRAM [Concomitant]
  8. PMS-RANITIDINE [Concomitant]
  9. RATIO ATORVASTATIN [Concomitant]

REACTIONS (4)
  - Blindness unilateral [Not Recovered/Not Resolved]
  - Chest discomfort [Not Recovered/Not Resolved]
  - Dyspnoea [Not Recovered/Not Resolved]
  - Thrombosis [Not Recovered/Not Resolved]
